FAERS Safety Report 7509230-3 (Version None)
Quarter: 2011Q2

REPORT INFORMATION
  Report Type: 
  Country: None (occurrence: None)
  Receive Date: 20110527
  Receipt Date: 20110520
  Transmission Date: 20111010
  Serious: Yes (Hospitalization)
  Sender: FDA-Public Use
  Company Number: US-ROCHE-636960

PATIENT
  Sex: Female
  Weight: 70.3 kg

DRUGS (12)
  1. FOLIC ACID [Concomitant]
     Dosage: TDD REPORTED AS 1-2 TABLET DAILY
     Route: 048
     Dates: start: 20081226
  2. VERAPAMIL [Concomitant]
     Indication: HYPERTENSION
     Dosage: TDD REPORTED AS 240 MG/QD.
     Dates: start: 20081218
  3. DIAZEPAM [Suspect]
     Dosage: TDD REPORTED AS 5MG/BID AND 20 MG/QD.
     Route: 065
     Dates: start: 20081203
  4. TRAZODONE HCL [Suspect]
     Dosage: TDD REPORTED AS 400MG/QD.
     Route: 065
     Dates: start: 20081202
  5. TRIAMTERENE AND HYDROCHLOROTHIAZIDE [Concomitant]
     Indication: HYPERTENSION
     Dosage: TDD: 25/37.5 MG DAILY.
     Dates: start: 19990101
  6. GLIMEPIRIDE [Concomitant]
     Dosage: TDD REPORTED AS 2MG/QD.
     Dates: start: 20081218
  7. ZANTAC [Concomitant]
     Dates: start: 20090527
  8. METHOTREXATE [Concomitant]
     Dosage: FREQUENCY: QS,  TDD REPORTED AS 25MG/QS.
     Dates: start: 19990101
  9. DIAZEPAM [Suspect]
     Dosage: REPORTED TDD:5 MG AND 20 MG QD.
     Route: 065
     Dates: start: 20081120
  10. CITALOPRAM HYDROBROMIDE [Concomitant]
     Dosage: TDD REPORTED AS 100MG/QD.  DRUG NAME REPORTED AS CELEXA.
     Dates: start: 20081208
  11. ESTRADIOL [Concomitant]
     Dosage: TDD REPORTED AS 1MG/QD.
     Dates: start: 20081217
  12. TOCILIZUMAB [Suspect]
     Indication: RHEUMATOID ARTHRITIS
     Dosage: LAST DOSE PRIOR TO SAE 18 MAY 2009.  DOSE REPORTED AS 0.4 ML/KG.
     Route: 042
     Dates: start: 20081007

REACTIONS (2)
  - ROAD TRAFFIC ACCIDENT [None]
  - SYNCOPE [None]
